FAERS Safety Report 6403340-X (Version None)
Quarter: 2009Q4

REPORT INFORMATION
  Report Type: 
  Country: None (occurrence: None)
  Receive Date: 20091016
  Receipt Date: 20091009
  Transmission Date: 20100525
  Serious: Yes (Hospitalization)
  Sender: FDA-Public Use
  Company Number: RO-SANOFI-SYNTHELABO-A01200905460

PATIENT
  Sex: Female
  Weight: 90 kg

DRUGS (7)
  1. XELODA [Suspect]
     Dosage: CUMMULATIVE DOSE 56000 MG
     Route: 048
     Dates: start: 20090504, end: 20090517
  2. NITROGLICERINE [Concomitant]
     Dates: start: 20090504, end: 20090504
  3. QUAMATEL [Concomitant]
     Indication: PROPHYLAXIS
     Dates: start: 20090504, end: 20090504
  4. DEXAMETAZONE [Concomitant]
     Indication: PROPHYLAXIS
     Dates: start: 20090504, end: 20090504
  5. OSETRON [Concomitant]
     Indication: PROPHYLAXIS
     Dates: start: 20090504, end: 20090504
  6. AVE5026 OR PLACEBO [Concomitant]
     Indication: THROMBOSIS PROPHYLAXIS
     Dates: start: 20090504, end: 20090508
  7. OXALIPLATINUM [Suspect]
     Dosage: 260 MG
     Route: 041
     Dates: start: 20090504, end: 20090504

REACTIONS (1)
  - MYOCARDIAL ISCHAEMIA [None]
